FAERS Safety Report 22598726 (Version 1)
Quarter: 2023Q2

REPORT INFORMATION
  Report Type: Spontaneous
  Country: UA (occurrence: UA)
  Receive Date: 20230614
  Receipt Date: 20230614
  Transmission Date: 20230721
  Serious: Yes (Other)
  Sender: FDA-Public Use
  Company Number: UA-STRIDES ARCOLAB LIMITED-2023SP009381

PATIENT

DRUGS (1)
  1. PROPRANOLOL [Suspect]
     Active Substance: PROPRANOLOL HYDROCHLORIDE
     Indication: Haemangioma of liver
     Dosage: UNK
     Route: 065

REACTIONS (2)
  - Bronchial obstruction [Unknown]
  - Off label use [Unknown]
